FAERS Safety Report 5069821-9 (Version None)
Quarter: 2006Q3

REPORT INFORMATION
  Report Type: 
  Country: None (occurrence: None)
  Receive Date: 20060803
  Receipt Date: 20060727
  Transmission Date: 20061208
  Serious: Yes (Hospitalization)
  Sender: FDA-Public Use
  Company Number: US-SANOFI-SYNTHELABO-A03200604788

PATIENT
  Age: 67 Year
  Sex: Male

DRUGS (2)
  1. PLAVIX [Suspect]
     Indication: STENT PLACEMENT
     Dosage: UNK
     Route: 048
     Dates: start: 20040101, end: 20060609
  2. TICLOPIDINE [Suspect]
     Indication: STENT PLACEMENT
     Route: 048
     Dates: start: 20060610

REACTIONS (6)
  - CHILLS [None]
  - CYANOSIS [None]
  - HAIRY CELL LEUKAEMIA [None]
  - PANCYTOPENIA [None]
  - PYREXIA [None]
  - SKIN DISCOLOURATION [None]
